FAERS Safety Report 21764421 (Version 1)
Quarter: 2022Q4

REPORT INFORMATION
  Report Type: Spontaneous
  Country: CA (occurrence: None)
  Receive Date: 20221222
  Receipt Date: 20221222
  Transmission Date: 20230113
  Serious: Yes (Hospitalization, Other)
  Sender: FDA-Public Use
  Company Number: 2022A408456

PATIENT
  Age: 20 Year
  Sex: Male

DRUGS (19)
  1. QUETIAPINE FUMARATE [Suspect]
     Active Substance: QUETIAPINE FUMARATE
     Indication: Substance use
     Route: 048
  2. QUETIAPINE FUMARATE [Suspect]
     Active Substance: QUETIAPINE FUMARATE
     Indication: Social anxiety disorder
     Route: 048
  3. QUETIAPINE FUMARATE [Suspect]
     Active Substance: QUETIAPINE FUMARATE
     Indication: Schizophrenia
     Route: 048
  4. ARIPIPRAZOLE [Suspect]
     Active Substance: ARIPIPRAZOLE
     Indication: Substance use
     Route: 065
  5. ARIPIPRAZOLE [Suspect]
     Active Substance: ARIPIPRAZOLE
     Indication: Social anxiety disorder
     Route: 065
  6. ARIPIPRAZOLE [Suspect]
     Active Substance: ARIPIPRAZOLE
     Indication: Schizophrenia
     Route: 065
  7. RISPERIDONE [Suspect]
     Active Substance: RISPERIDONE
     Indication: Substance use
     Dosage: 10 MONTTS
     Route: 048
  8. RISPERIDONE [Suspect]
     Active Substance: RISPERIDONE
     Indication: Social anxiety disorder
     Dosage: 10 MONTTS
     Route: 048
  9. RISPERIDONE [Suspect]
     Active Substance: RISPERIDONE
     Indication: Schizophrenia
     Dosage: 10 MONTTS
     Route: 048
  10. RISPERDAL [Suspect]
     Active Substance: RISPERIDONE
     Indication: Substance use
     Dosage: 10 MONTHS
     Route: 048
  11. RISPERDAL [Suspect]
     Active Substance: RISPERIDONE
     Indication: Social anxiety disorder
     Dosage: 10 MONTHS
     Route: 048
  12. RISPERDAL [Suspect]
     Active Substance: RISPERIDONE
     Indication: Schizophrenia
     Dosage: 10 MONTHS
     Route: 048
  13. SERTRALINE [Suspect]
     Active Substance: SERTRALINE HYDROCHLORIDE
     Indication: Social anxiety disorder
     Route: 048
  14. CLOZAPINE [Suspect]
     Active Substance: CLOZAPINE
     Indication: Schizophrenia
     Route: 065
  15. CLOZAPINE [Suspect]
     Active Substance: CLOZAPINE
     Indication: Schizophrenia
     Route: 065
  16. CLOZAPINE [Suspect]
     Active Substance: CLOZAPINE
     Indication: Schizophrenia
     Route: 065
  17. INVEGA [Concomitant]
     Active Substance: PALIPERIDONE
     Route: 030
  18. BENZTROPINE [Concomitant]
     Active Substance: BENZTROPINE
     Route: 065
  19. LORAZEPAM [Concomitant]
     Active Substance: LORAZEPAM

REACTIONS (7)
  - Drug ineffective [Recovered/Resolved]
  - Hallucination [Recovered/Resolved]
  - Myalgia [Recovered/Resolved]
  - Rhabdomyolysis [Recovered/Resolved]
  - Treatment noncompliance [Recovered/Resolved]
  - Blood creatine phosphokinase increased [Recovered/Resolved]
  - Weight increased [Recovered/Resolved]
